FAERS Safety Report 8837944 (Version 3)
Quarter: 2015Q2

REPORT INFORMATION
  Report Type: Report from Study
  Country: US (occurrence: US)
  Receive Date: 20121012
  Receipt Date: 20150416
  Transmission Date: 20150821
  Serious: Yes (Death, Hospitalization)
  Sender: FDA-Public Use
  Company Number: US-ROCHE-1109832

PATIENT
  Sex: Female
  Weight: 5.12 kg

DRUGS (2)
  1. NUTROPIN AQ [Suspect]
     Active Substance: SOMATROPIN
     Indication: HYPOGLYCAEMIA NEONATAL
  2. NUTROPIN AQ [Suspect]
     Active Substance: SOMATROPIN
     Indication: HYPOPITUITARISM
     Route: 058
     Dates: start: 20090115, end: 20090204

REACTIONS (3)
  - Hypoglycaemia [Recovered/Resolved]
  - Cardiac disorder [Fatal]
  - Malaise [Unknown]
